FAERS Safety Report 9848858 (Version 3)
Quarter: 2014Q2

REPORT INFORMATION
  Report Type: Spontaneous
  Country: JP (occurrence: JP)
  Receive Date: 20140128
  Receipt Date: 20140418
  Transmission Date: 20141212
  Serious: Yes (Hospitalization, Other)
  Sender: FDA-Public Use
  Company Number: JP-JNJFOC-20130802731

PATIENT
  Age: 20 Year
  Sex: Female
  Weight: 52 kg

DRUGS (9)
  1. REMICADE [Suspect]
     Indication: PUSTULAR PSORIASIS
     Route: 042
     Dates: start: 20130814
  2. REMICADE [Suspect]
     Indication: PUSTULAR PSORIASIS
     Route: 042
     Dates: start: 20130912
  3. REMICADE [Suspect]
     Indication: PUSTULAR PSORIASIS
     Route: 042
     Dates: start: 20131107
  4. REMICADE [Suspect]
     Indication: PUSTULAR PSORIASIS
     Route: 042
     Dates: start: 20130731
  5. PREDONINE [Suspect]
     Indication: PUSTULAR PSORIASIS
     Route: 065
     Dates: start: 20130709, end: 20130723
  6. NEORAL [Suspect]
     Indication: PUSTULAR PSORIASIS
     Route: 048
     Dates: start: 201304, end: 20130407
  7. CALONAL [Suspect]
     Indication: PYREXIA
     Dosage: 400 MG, 1200 MG
     Route: 048
     Dates: start: 20130705, end: 20130716
  8. CEFZON [Suspect]
     Indication: BIOPSY SKIN
     Dosage: 100 DF, 300 DF
     Route: 048
     Dates: start: 20130709, end: 20130712
  9. PREDNISOLONE [Suspect]
     Indication: PUSTULAR PSORIASIS
     Route: 048
     Dates: start: 20130724

REACTIONS (6)
  - Premature rupture of membranes [Recovered/Resolved]
  - Placental insufficiency [Unknown]
  - Premature delivery [Recovered/Resolved]
  - Exposure during pregnancy [Recovered/Resolved]
  - Amniotic cavity infection [Recovered/Resolved]
  - Staphylococcal infection [Unknown]
